FAERS Safety Report 12420412 (Version 1)
Quarter: 2016Q2

REPORT INFORMATION
  Report Type: Report from Study
  Country: ES (occurrence: ES)
  Receive Date: 20160531
  Receipt Date: 20160531
  Transmission Date: 20160815
  Serious: Yes (Other)
  Sender: FDA-Public Use
  Company Number: ES-MEDA-2016050090

PATIENT
  Age: 91 Year
  Sex: Female

DRUGS (2)
  1. COZAAR [Suspect]
     Active Substance: LOSARTAN POTASSIUM
     Route: 048
     Dates: start: 2016, end: 20160309
  2. DILUTOL 10 MG [Suspect]
     Active Substance: TORSEMIDE
     Route: 048
     Dates: start: 2016, end: 20160309

REACTIONS (1)
  - Acute kidney injury [Recovered/Resolved]

NARRATIVE: CASE EVENT DATE: 2016
